FAERS Safety Report 7514624-6 (Version None)
Quarter: 2011Q2

REPORT INFORMATION
  Report Type: 
  Country: None (occurrence: None)
  Receive Date: 20110520
  Receipt Date: 20110509
  Transmission Date: 20111010
  Serious: Yes (Other)
  Sender: FDA-Public Use
  Company Number: 73954

PATIENT
  Sex: Male

DRUGS (1)
  1. OXY CLINICAL CLEARING TREATMENT, 5% BENZOYL PEROXIDE [Suspect]
     Indication: ACNE
     Dosage: 1 APPLICATION, TOPICAL
     Route: 061
     Dates: start: 20110507

REACTIONS (5)
  - APPLICATION SITE PRURITUS [None]
  - ERYTHEMA [None]
  - APPLICATION SITE ERYTHEMA [None]
  - APPLICATION SITE IRRITATION [None]
  - APPLICATION SITE SWELLING [None]
